FAERS Safety Report 7324470-4 (Version None)
Quarter: 2011Q1

REPORT INFORMATION
  Report Type: 
  Country: None (occurrence: None)
  Receive Date: 20110301
  Receipt Date: 20110214
  Transmission Date: 20110831
  Serious: Yes (Death, Hospitalization, Other)
  Sender: FDA-Public Use
  Company Number: US-CELGENEUS-163-21880-10122615

PATIENT
  Sex: Female

DRUGS (7)
  1. OXYCODONE [Concomitant]
     Route: 065
  2. PRILOSEC [Concomitant]
     Route: 065
  3. REVLIMID [Suspect]
     Indication: MULTIPLE MYELOMA
     Dosage: 25 MILLIGRAM
     Route: 048
     Dates: start: 20100801, end: 20101022
  4. VELCADE [Concomitant]
     Route: 065
  5. LOVENOX [Concomitant]
     Dosage: 80 MICROGRAM
     Route: 058
     Dates: start: 20101008
  6. DECADRON [Concomitant]
     Route: 065
  7. LEVOTHYROXINE [Concomitant]
     Route: 065

REACTIONS (2)
  - DEEP VEIN THROMBOSIS [None]
  - SARCOMA [None]
